FAERS Safety Report 7932740-1 (Version None)
Quarter: 2011Q4

REPORT INFORMATION
  Report Type: 
  Country: None (occurrence: None)
  Receive Date: 20111122
  Receipt Date: 20111112
  Transmission Date: 20120403
  Serious: Yes (Hospitalization)
  Sender: FDA-Public Use
  Company Number: US-ABBOTT-11P-163-0869595-00

PATIENT
  Age: 48 Year
  Sex: Female

DRUGS (8)
  1. HYDROCODONE BITARTRATE [Concomitant]
     Indication: PAIN
     Dosage: 10/325MG AS REQUIRED
     Dates: start: 20040101
  2. PANCREAZE [Concomitant]
     Indication: PANCREATIC INSUFFICIENCY
     Dosage: WITH MEALS
     Dates: start: 20040101
  3. ZOFRAN [Concomitant]
     Indication: NAUSEA
  4. PREDNISONE TAB [Concomitant]
     Indication: SYSTEMIC LUPUS ERYTHEMATOSUS
     Dosage: 5 MG X 2 TABLETS DAILY
  5. NAPROXEN (ALEVE) [Concomitant]
     Indication: PAIN
     Dosage: 1-2 AS NEEDED
  6. HUMIRA [Suspect]
     Indication: PSORIATIC ARTHROPATHY
     Dates: start: 20110804
  7. LEVOTHYROXINE SODIUM [Concomitant]
     Indication: HYPOTHYROIDISM
     Dates: start: 19920101
  8. REQUIP [Concomitant]
     Indication: RESTLESS LEGS SYNDROME

REACTIONS (5)
  - VITAMIN B12 DEFICIENCY [None]
  - VITAMIN B12 DECREASED [None]
  - CLOSTRIDIAL INFECTION [None]
  - GENERAL PHYSICAL HEALTH DETERIORATION [None]
  - HAEMOGLOBIN DECREASED [None]
